FAERS Safety Report 11687082 (Version 1)
Quarter: 2015Q4

REPORT INFORMATION
  Report Type: Spontaneous
  Country: FR (occurrence: FR)
  Receive Date: 20151030
  Receipt Date: 20151030
  Transmission Date: 20160304
  Serious: Yes (Hospitalization, Other)
  Sender: FDA-Public Use
  Company Number: PHHY2015FR126435

PATIENT
  Age: 4 Year
  Sex: Male
  Weight: 24 kg

DRUGS (10)
  1. HYDROCORTISONE. [Suspect]
     Active Substance: HYDROCORTISONE
     Dosage: 15 MG, UNK
     Route: 065
     Dates: start: 20141226
  2. METHOTREXATE [Suspect]
     Active Substance: METHOTREXATE
     Dosage: 36 MG, UNK
     Dates: start: 20141217
  3. VINCRISTINE SULFATE. [Suspect]
     Active Substance: VINCRISTINE SULFATE
     Indication: PRODUCT USED FOR UNKNOWN INDICATION
     Dosage: 1.3 MG, QD
     Route: 065
     Dates: start: 20141216
  4. ARACYTINE [Suspect]
     Active Substance: CYTARABINE
     Indication: PRODUCT USED FOR UNKNOWN INDICATION
     Dosage: 30 MG, UNK
     Route: 037
     Dates: start: 20141217
  5. METHOTREXATE [Suspect]
     Active Substance: METHOTREXATE
     Dosage: 12 UNK, UNK
     Dates: start: 20141226
  6. ZOPHREN [Suspect]
     Active Substance: ONDANSETRON
     Indication: PRODUCT USED FOR UNKNOWN INDICATION
     Dosage: 4.3 MG, UNK
     Route: 048
     Dates: start: 20141226
  7. ONCASPAR [Suspect]
     Active Substance: PEGASPARGASE
     Indication: PRODUCT USED FOR UNKNOWN INDICATION
     Dosage: 2150 IU, UNK
     Route: 030
     Dates: start: 20141219
  8. HYDROCORTISONE. [Suspect]
     Active Substance: HYDROCORTISONE
     Indication: PRODUCT USED FOR UNKNOWN INDICATION
     Dosage: UNK
     Route: 037
     Dates: start: 20141217
  9. DEXAMETHASONE. [Suspect]
     Active Substance: DEXAMETHASONE
     Indication: PRODUCT USED FOR UNKNOWN INDICATION
     Dosage: 8.6 MG, QD
     Route: 048
     Dates: start: 20141216
  10. METHOTREXATE [Suspect]
     Active Substance: METHOTREXATE
     Indication: PRODUCT USED FOR UNKNOWN INDICATION
     Dosage: 86 MG (3 MIN INFUSION) AND 770 MG (ELECTRICAL SYRINGE ON 35 H30)
     Route: 065
     Dates: start: 20141216

REACTIONS (1)
  - Febrile bone marrow aplasia [Recovering/Resolving]

NARRATIVE: CASE EVENT DATE: 20150106
